FAERS Safety Report 18243997 (Version 2)
Quarter: 2020Q4

REPORT INFORMATION
  Report Type: Report from Study
  Country: None (occurrence: US)
  Receive Date: 20200909
  Receipt Date: 20201127
  Transmission Date: 20210113
  Serious: Yes (Other)
  Sender: FDA-Public Use
  Company Number: US-ABBVIE-20K-163-3556150-00

PATIENT
  Sex: Female
  Weight: 122.58 kg

DRUGS (2)
  1. SYNTHROID [Suspect]
     Active Substance: LEVOTHYROXINE SODIUM
     Indication: HYPOTHYROIDISM
  2. SYNTHROID [Suspect]
     Active Substance: LEVOTHYROXINE SODIUM
     Indication: THYROID CANCER
     Route: 048
     Dates: start: 2004

REACTIONS (6)
  - Spondylitis [Recovering/Resolving]
  - Back pain [Not Recovered/Not Resolved]
  - Spinal osteoarthritis [Recovering/Resolving]
  - Arthritis [Recovering/Resolving]
  - Drug ineffective [Unknown]
  - Unevaluable event [Unknown]

NARRATIVE: CASE EVENT DATE: 2012
